FAERS Safety Report 24862751 (Version 3)
Quarter: 2025Q2

REPORT INFORMATION
  Report Type: Report from Study
  Country: US (occurrence: US)
  Receive Date: 20250120
  Receipt Date: 20250429
  Transmission Date: 20250717
  Serious: Yes (Other)
  Sender: ABBVIE
  Company Number: US-ABBVIE-6090108

PATIENT
  Sex: Female
  Weight: 70.306 kg

DRUGS (6)
  1. HUMIRA [Suspect]
     Active Substance: ADALIMUMAB
     Indication: Rheumatoid arthritis
     Dosage: CITRATE FREE
     Route: 058
     Dates: start: 20211222, end: 202501
  2. HUMIRA [Suspect]
     Active Substance: ADALIMUMAB
     Dosage: CITRATE FREE
     Route: 058
     Dates: start: 202504
  3. FOLIC ACID [Concomitant]
     Active Substance: FOLIC ACID
     Indication: Vitamin supplementation
     Route: 065
  4. METHOTREXATE [Concomitant]
     Active Substance: METHOTREXATE
     Indication: Rheumatoid arthritis
  5. SERTRALINE [Concomitant]
     Active Substance: SERTRALINE HYDROCHLORIDE
     Indication: Anxiety
     Route: 065
  6. LOSARTAN [Concomitant]
     Active Substance: LOSARTAN
     Indication: Hypertension
     Route: 065

REACTIONS (10)
  - Haemorrhoids [Recovering/Resolving]
  - Herpes zoster [Recovered/Resolved]
  - Cellulitis [Recovering/Resolving]
  - Post procedural infection [Unknown]
  - Anal abscess [Recovering/Resolving]
  - Postoperative abscess [Recovering/Resolving]
  - Rheumatoid arthritis [Recovering/Resolving]
  - Anorectal swelling [Unknown]
  - Anal erythema [Unknown]
  - Anal inflammation [Unknown]

NARRATIVE: CASE EVENT DATE: 20211201
